FAERS Safety Report 7441869-6 (Version None)
Quarter: 2011Q2

REPORT INFORMATION
  Report Type: 
  Country: None (occurrence: None)
  Receive Date: 20110428
  Receipt Date: 20110418
  Transmission Date: 20111010
  Serious: Yes (Hospitalization)
  Sender: FDA-Public Use
  Company Number: CA-ELI_LILLY_AND_COMPANY-CA201104005050

PATIENT
  Sex: Male

DRUGS (6)
  1. XANAX [Concomitant]
  2. PAXIL [Concomitant]
  3. ZYPREXA [Suspect]
     Indication: SCHIZOPHRENIA
     Dosage: 10 MG, EACH EVENING
  4. LORAZEPAM [Concomitant]
  5. CLONAZEPAM [Concomitant]
  6. NITROGLYCERIN [Concomitant]

REACTIONS (9)
  - PARAESTHESIA [None]
  - HAEMOPTYSIS [None]
  - WEIGHT INCREASED [None]
  - DIABETES MELLITUS [None]
  - SLEEP APNOEA SYNDROME [None]
  - ASPARTATE AMINOTRANSFERASE INCREASED [None]
  - ALANINE AMINOTRANSFERASE INCREASED [None]
  - HYPOTHYROIDISM [None]
  - HYPERTENSION [None]
